FAERS Safety Report 6315731-6 (Version None)
Quarter: 2009Q3

REPORT INFORMATION
  Report Type: 
  Country: None (occurrence: None)
  Receive Date: 20090819
  Receipt Date: 20080709
  Transmission Date: 20100115
  Serious: No
  Sender: FDA-Public Use
  Company Number: US-BAUSCH-2008BL003030

PATIENT
  Age: 84 Year
  Sex: Female

DRUGS (5)
  1. CROMOLYN SODIUM [Suspect]
     Indication: HYPERSENSITIVITY
     Route: 045
     Dates: start: 20080625, end: 20080708
  2. CARTIA /USA/ [Concomitant]
     Indication: ATRIAL FIBRILLATION
     Route: 048
  3. XANAX /USA/ [Concomitant]
     Route: 048
  4. SYNTHROID [Concomitant]
     Indication: THYROID DISORDER
     Route: 048
  5. PRESERVISION AREDS SOFT GELS [Concomitant]
     Indication: VITAMIN SUPPLEMENTATION
     Route: 048

REACTIONS (5)
  - ASTHENIA [None]
  - DIZZINESS [None]
  - FEELING JITTERY [None]
  - HEART RATE INCREASED [None]
  - TREMOR [None]
